FAERS Safety Report 16237718 (Version 1)
Quarter: 2019Q2

REPORT INFORMATION
  Report Type: Spontaneous
  Country: US (occurrence: US)
  Receive Date: 20190424
  Receipt Date: 20190424
  Transmission Date: 20190711
  Serious: Yes (Disabling)
  Sender: FDA-Public Use
  Company Number: None

PATIENT
  Age: 57 Year
  Sex: Female
  Weight: 78.75 kg

DRUGS (1)
  1. EXEMESTANE 25 MG [Suspect]
     Active Substance: EXEMESTANE
     Indication: BREAST CANCER
     Dates: start: 20190210, end: 20190225

REACTIONS (4)
  - Urinary tract infection [None]
  - Product substitution issue [None]
  - Fungal infection [None]
  - Migraine [None]

NARRATIVE: CASE EVENT DATE: 20190223
